FAERS Safety Report 4352104-X (Version None)
Quarter: 2004Q2

REPORT INFORMATION
  Report Type: 
  Country: None (occurrence: None)
  Receive Date: 20040409
  Receipt Date: 20040317
  Transmission Date: 20050107
  Serious: No
  Sender: FDA-Public Use
  Company Number: PHEH2004US02266

PATIENT
  Age: 86 Year
  Sex: Female
  Weight: 63.5 kg

DRUGS (2)
  1. ELIDEL [Suspect]
     Indication: ECZEMA
     Dosage: BID,TOPICAL
     Route: 061
     Dates: start: 20031101, end: 20040218
  2. TOPICORT (DESOXIMETASONE) GEL [Concomitant]

REACTIONS (1)
  - PRURITUS [None]
